FAERS Safety Report 4435102-7 (Version None)
Quarter: 2004Q3

REPORT INFORMATION
  Report Type: 
  Country: None (occurrence: None)
  Receive Date: 20040826
  Receipt Date: 20040810
  Transmission Date: 20050211
  Serious: Yes (Disabling)
  Sender: FDA-Public Use
  Company Number: 2004AC00208

PATIENT
  Age: 19 Year
  Sex: Male

DRUGS (3)
  1. LIDOCAINE [Suspect]
     Indication: ANAESTHESIA
     Dosage: 1240 MG DAILY
  2. BUPIVACAINE [Suspect]
     Indication: ANAESTHESIA
  3. MEPERIDINE HCL [Suspect]
     Indication: ANAESTHESIA

REACTIONS (6)
  - ANAESTHETIC COMPLICATION [None]
  - BLADDER DISORDER [None]
  - BODY TEMPERATURE DECREASED [None]
  - INTESTINAL FUNCTIONAL DISORDER [None]
  - PARAPLEGIA [None]
  - SPINAL CORD INFARCTION [None]
